FAERS Safety Report 4604088-4 (Version None)
Quarter: 2005Q1

REPORT INFORMATION
  Report Type: 
  Country: None (occurrence: None)
  Receive Date: 20050309
  Receipt Date: 20050309
  Transmission Date: 20050727
  Serious: No
  Sender: FDA-Public Use
  Company Number: None

PATIENT
  Sex: Female
  Weight: 63.1407 kg

DRUGS (3)
  1. STRATTERA [Suspect]
     Indication: ATTENTION DEFICIT/HYPERACTIVITY DISORDER
     Dosage: 25MG   QAM AND Q NOON     ORAL
     Route: 048
     Dates: start: 20050215, end: 20050308
  2. ZOLOFT [Suspect]
     Indication: DEPRESSION
     Dosage: 100MG  BID  ORAL
     Route: 048
     Dates: start: 20050215, end: 20050306
  3. VISTARIL [Concomitant]

REACTIONS (1)
  - TACHYCARDIA [None]
